FAERS Safety Report 5058951-3 (Version None)
Quarter: 2006Q2

REPORT INFORMATION
  Report Type: 
  Country: None (occurrence: None)
  Receive Date: 20060629
  Receipt Date: 20060327
  Transmission Date: 20061013
  Serious: No
  Sender: FDA-Public Use
  Company Number: PHEH2006US04136

PATIENT
  Sex: Female

DRUGS (2)
  1. ENABLEX [Suspect]
     Dosage: 15 MG, QD
  2. LASIX [Suspect]
     Indication: FLUID RETENTION
     Dosage: 40 MG, QD

REACTIONS (1)
  - URINARY INCONTINENCE [None]
